FAERS Safety Report 12204609 (Version 1)
Quarter: 2016Q1

REPORT INFORMATION
  Report Type: Report from Study
  Country: US (occurrence: US)
  Receive Date: 20160323
  Receipt Date: 20160323
  Transmission Date: 20160526
  Serious: Yes (Other)
  Sender: FDA-Public Use
  Company Number: US-ABBVIE-16K-163-1582468-00

PATIENT
  Sex: Female

DRUGS (1)
  1. HUMIRA [Suspect]
     Active Substance: ADALIMUMAB
     Indication: PSORIATIC ARTHROPATHY
     Route: 058
     Dates: start: 20160118

REACTIONS (5)
  - Hand deformity [Unknown]
  - Arthralgia [Unknown]
  - Back pain [Unknown]
  - Joint swelling [Unknown]
  - Mobility decreased [Unknown]

NARRATIVE: CASE EVENT DATE: 2016
